FAERS Safety Report 12707412 (Version 1)
Quarter: 2016Q3

REPORT INFORMATION
  Report Type: Spontaneous
  Country: JP (occurrence: JP)
  Receive Date: 20160901
  Receipt Date: 20160901
  Transmission Date: 20161109
  Serious: Yes (Other)
  Sender: FDA-Public Use
  Company Number: JP-EMD SERONO-8103380

PATIENT
  Age: 38 Year
  Sex: Female

DRUGS (7)
  1. PROGESTERONE. [Concomitant]
     Active Substance: PROGESTERONE
     Indication: INFERTILITY
     Dosage: 31DAYS
     Route: 067
  2. CONJUGATED ESTROGENS [Concomitant]
     Active Substance: ESTROGENS, CONJUGATED
     Indication: INFERTILITY
     Dosage: 31DAYS
     Route: 048
  3. HMG                                /01277601/ [Concomitant]
     Indication: INFERTILITY
     Route: 065
  4. HCG [Concomitant]
     Active Substance: GONADOTROPHIN, CHORIONIC
     Indication: INFERTILITY
     Route: 065
  5. CHLORMADINONE ACETATE [Concomitant]
     Active Substance: CHLORMADINONE ACETATE
     Indication: INFERTILITY
     Dosage: 31DAYS
     Route: 048
  6. GONAL-F [Suspect]
     Active Substance: FOLLITROPIN
     Indication: INFERTILITY
     Route: 058
  7. PROGESTERONE. [Concomitant]
     Active Substance: PROGESTERONE
     Route: 030

REACTIONS (1)
  - Cerebral venous thrombosis [Unknown]
